FAERS Safety Report 14907839 (Version 5)
Quarter: 2018Q2

REPORT INFORMATION
  Report Type: Spontaneous
  Country: ES (occurrence: ES)
  Receive Date: 20180517
  Receipt Date: 20180628
  Transmission Date: 20180711
  Serious: Yes (Hospitalization, Other)
  Sender: FDA-Public Use
  Company Number: ES-009507513-1805ESP004798

PATIENT
  Age: 68 Year
  Sex: Male
  Weight: 90 kg

DRUGS (1)
  1. KEYTRUDA [Suspect]
     Active Substance: PEMBROLIZUMAB
     Indication: LUNG NEOPLASM MALIGNANT
     Dosage: 200 MG, EVERY 3 WEEKS
     Dates: start: 20180207, end: 20180301

REACTIONS (9)
  - Leukopenia [Unknown]
  - Pyrexia [Unknown]
  - Anaemia [Unknown]
  - C-reactive protein increased [Unknown]
  - Tumour pseudoprogression [Unknown]
  - Thrombocytopenia [Unknown]
  - Neutropenia [Recovered/Resolved]
  - Haemoptysis [Unknown]
  - Malaise [Unknown]

NARRATIVE: CASE EVENT DATE: 2018
